FAERS Safety Report 8171961-2 (Version None)
Quarter: 2012Q1

REPORT INFORMATION
  Report Type: 
  Country: None (occurrence: None)
  Receive Date: 20120228
  Receipt Date: 20120215
  Transmission Date: 20120608
  Serious: Yes (Hospitalization, Disabling)
  Sender: FDA-Public Use
  Company Number: FR-SANOFI-AVENTIS-2011SA064298

PATIENT
  Sex: Female

DRUGS (6)
  1. TAXOTERE [Suspect]
     Route: 042
     Dates: start: 20050101, end: 20050101
  2. TAXOTERE [Suspect]
     Indication: BREAST NEOPLASM
     Dosage: 1 CURE EVERY 3 WEEKS IN 2007 AT UNKNOWN DOSES
     Route: 042
     Dates: start: 20070101, end: 20070101
  3. DEDROGYL [Concomitant]
     Route: 065
  4. INSULIN [Concomitant]
     Indication: TYPE 1 DIABETES MELLITUS
     Route: 065
  5. NOVOMIX [Concomitant]
  6. TAXOTERE [Suspect]
     Route: 042

REACTIONS (7)
  - BACK PAIN [None]
  - ARTHRALGIA [None]
  - SCIATICA [None]
  - GAIT DISTURBANCE [None]
  - OSTEOARTHRITIS [None]
  - TENDON RUPTURE [None]
  - NEUROPATHY PERIPHERAL [None]
